FAERS Safety Report 23326617 (Version 1)
Quarter: 2023Q4

REPORT INFORMATION
  Report Type: Spontaneous
  Country: US (occurrence: None)
  Receive Date: 20231220
  Receipt Date: 20231220
  Transmission Date: 20240109
  Serious: Yes (Death)
  Sender: FDA-Public Use
  Company Number: None

PATIENT
  Age: 72 Year
  Sex: Male
  Weight: 63.18 kg

DRUGS (19)
  1. ENVARSUS XR [Suspect]
     Active Substance: TACROLIMUS
     Indication: Prophylaxis against transplant rejection
     Dosage: 2 MG TWICE A DAY ORAL
     Route: 048
     Dates: start: 20191112
  2. MEGESTROL ACETATE 40MG/ML SUSP [Concomitant]
     Dates: start: 20191112
  3. DILTIAZEM 120MG TABLETS [Concomitant]
     Dates: start: 20191112
  4. ELIQUIS [Concomitant]
     Active Substance: APIXABAN
     Dates: start: 20191112
  5. FLUTICASONE 50MCG NASAL SP (120) RX [Concomitant]
     Dates: start: 20191112
  6. IPRATROPIUM 0.03% NAS SP 30ML (345) [Concomitant]
     Dates: start: 20191112
  7. ROSUVASTATIN [Concomitant]
     Active Substance: ROSUVASTATIN
     Dates: start: 20191112
  8. VITAMIN B-12 1000MCG CR TABLETS [Concomitant]
     Dates: start: 20191112
  9. CLARITIN 10MG CAPSULES [Concomitant]
     Dates: start: 20191112
  10. ALPRAZOLAM [Concomitant]
     Active Substance: ALPRAZOLAM
     Dates: start: 20191112
  11. CALCIUM 500MG TABLETS [Concomitant]
     Dates: start: 20191112
  12. ESCITALOPRAM OXALATE [Concomitant]
     Active Substance: ESCITALOPRAM OXALATE
     Dates: start: 20191112
  13. GABAPENTIN [Concomitant]
     Active Substance: GABAPENTIN
     Dates: start: 20191112
  14. MAG-OXIDE 400MG TABLETS [Concomitant]
     Dates: start: 20191112
  15. MULTI-VITAMIN TABLETS [Concomitant]
     Dates: start: 20191112
  16. PREDNISONE [Concomitant]
     Active Substance: PREDNISONE
     Dates: start: 20191112
  17. ROPINIROLE 1MG TABLETS [Concomitant]
     Dates: start: 20191112
  18. SULFAMETH/TRIMETH 400-80MG TAB [Concomitant]
     Dates: start: 20191112
  19. VITAMIN D 2,000IU TABLETS [Concomitant]
     Dates: start: 20191112

REACTIONS (1)
  - Death [None]

NARRATIVE: CASE EVENT DATE: 20231208
